FAERS Safety Report 10247431 (Version 3)
Quarter: 2014Q2

REPORT INFORMATION
  Report Type: Report from Study
  Country: JP (occurrence: JP)
  Receive Date: 20140619
  Receipt Date: 20140624
  Transmission Date: 20141212
  Serious: Yes (Other)
  Sender: FDA-Public Use
  Company Number: JP-SA-2014SA077036

PATIENT
  Age: 19 Year
  Sex: Male
  Weight: 60 kg

DRUGS (2)
  1. DELLEGRA [Suspect]
     Indication: RHINITIS ALLERGIC
     Dosage: 2 TABLETS
     Route: 048
     Dates: start: 20140226, end: 20140309
  2. DELLEGRA [Suspect]
     Indication: RHINITIS ALLERGIC
     Route: 048
     Dates: start: 20140317, end: 20140319

REACTIONS (1)
  - Gastroenteritis viral [Recovered/Resolved]
